FAERS Safety Report 9324457 (Version 1)
Quarter: 2013Q2

REPORT INFORMATION
  Report Type: Report from Study
  Country: GB (occurrence: GB)
  Receive Date: 20130603
  Receipt Date: 20130603
  Transmission Date: 20140414
  Serious: Yes (Hospitalization)
  Sender: FDA-Public Use
  Company Number: GB-ELI_LILLY_AND_COMPANY-GB201305007021

PATIENT
  Age: 52 Year
  Sex: Female
  Weight: 77 kg

DRUGS (25)
  1. GEMCITABINE HYDROCHLORIDE [Suspect]
     Indication: LYMPHOMA
     Dosage: 1350 MG, UNK
     Route: 042
     Dates: start: 20081001, end: 20081101
  2. CYCLOPHOSPHAMIDE [Suspect]
     Indication: LYMPHOMA
     Dosage: 1350 MG, UNK
     Route: 042
     Dates: start: 20081101, end: 20081101
  3. VINCRISTINE [Suspect]
     Indication: LYMPHOMA
     Dosage: 2 MG, UNK
     Route: 042
     Dates: start: 20081101, end: 20081101
  4. RITUXIMAB [Suspect]
     Indication: LYMPHOMA
     Dosage: 675 MG, UNK
     Route: 042
     Dates: start: 20081101
  5. PREDNISOLONE [Suspect]
     Indication: LYMPHOMA
     Dosage: 100 MG, UNK
     Route: 048
     Dates: start: 20081031, end: 20081103
  6. CITALOPRAM [Concomitant]
     Indication: DEPRESSION
     Dosage: 40 MG, UNK
     Route: 048
  7. ATORVASTATIN [Concomitant]
     Indication: HYPERLIPIDAEMIA
     Dosage: 40 MG, UNK
     Route: 048
  8. PIZOTIFEN [Concomitant]
     Indication: PROPHYLAXIS
     Dosage: 500 UG, UNK
     Route: 048
  9. EZETIMIBE [Concomitant]
     Dosage: 10 MG, UNK
     Route: 048
  10. ONDANSETRON [Concomitant]
     Indication: PROPHYLAXIS
     Dosage: 8 MG, TID
     Route: 048
     Dates: start: 20081002, end: 20081101
  11. ENOXAPARIN [Concomitant]
     Indication: PROPHYLAXIS
     Dosage: 20 MG, UNK
     Route: 048
     Dates: start: 20080930
  12. MORPHINE [Concomitant]
     Indication: PAIN
     Dosage: UNK
     Dates: start: 20080930, end: 20081103
  13. DEXAMETHASONE [Concomitant]
     Indication: GASTRIC DISORDER
     Dosage: 4 MG, UNK
     Dates: start: 20081027, end: 20081029
  14. MEROPENEM [Concomitant]
     Indication: SEPSIS
     Dosage: 1 G, UNK
     Route: 042
     Dates: start: 20081025, end: 20081111
  15. TAZOCIN [Concomitant]
     Indication: INFECTION
     Dosage: 4.5 G, UNK
     Route: 042
     Dates: start: 20081016, end: 20081025
  16. COTRIMOXAZOLE [Concomitant]
     Indication: PROPHYLAXIS
     Dosage: 480 MG, UNK
     Route: 048
     Dates: start: 20081031, end: 20081104
  17. FLUCONAZOLE [Concomitant]
     Indication: PROPHYLAXIS
     Dosage: 100 MG, UNK
     Route: 048
     Dates: start: 20081031
  18. FUROSEMIDE [Concomitant]
     Indication: FLUID RETENTION
     Dosage: 40 MG, UNK
     Route: 042
     Dates: start: 20081014, end: 20081104
  19. ESOMEPRAZOLE [Concomitant]
     Indication: GASTRITIS
     Dosage: 40 MG, UNK
     Route: 042
  20. ALLOPURINOL [Concomitant]
     Indication: PROPHYLAXIS
     Dosage: 3500 MG, UNK
     Route: 048
     Dates: start: 20081031, end: 20081102
  21. PARACETAMOL [Concomitant]
     Indication: PAIN
     Dosage: 1 G, UNK
     Route: 048
     Dates: start: 20080930
  22. METOCLOPRAMIDE [Concomitant]
     Indication: PROPHYLAXIS
     Dosage: 10 MG, UNK
     Route: 048
     Dates: start: 20081007
  23. CYCLIZINE [Concomitant]
     Indication: PROPHYLAXIS
     Dosage: 50 MG, PRN
     Route: 042
     Dates: start: 20081001
  24. CHLORPHENIRAMINE [Concomitant]
     Indication: PREMEDICATION
     Dosage: 10 MG, UNK
     Route: 042
     Dates: start: 20081031
  25. AMIKACIN [Concomitant]
     Indication: INFECTION
     Dosage: 1.2 G, UNK
     Route: 042
     Dates: start: 20081016, end: 20081028

REACTIONS (1)
  - Tumour lysis syndrome [Recovered/Resolved]
